FAERS Safety Report 18134978 (Version 1)
Quarter: 2020Q3

REPORT INFORMATION
  Report Type: Spontaneous
  Country: US (occurrence: US)
  Receive Date: 20200811
  Receipt Date: 20200811
  Transmission Date: 20201103
  Serious: Yes (Death)
  Sender: FDA-Public Use
  Company Number: US-PFIZER INC-2020303904

PATIENT
  Age: 76 Year
  Sex: Female
  Weight: 69.39 kg

DRUGS (1)
  1. VANCOMYCIN HCL [Suspect]
     Active Substance: VANCOMYCIN HYDROCHLORIDE
     Dosage: UNK

REACTIONS (4)
  - Paraesthesia [Fatal]
  - Vomiting [Fatal]
  - Drug hypersensitivity [Fatal]
  - Nausea [Fatal]

NARRATIVE: CASE EVENT DATE: 20200719
